FAERS Safety Report 4301741-7 (Version None)
Quarter: 2004Q1

REPORT INFORMATION
  Report Type: 
  Country: None (occurrence: None)
  Receive Date: 20040219
  Receipt Date: 20040212
  Transmission Date: 20041129
  Serious: Yes (Death)
  Sender: FDA-Public Use
  Company Number: US-JNJFOC-20040202729

PATIENT
  Age: 77 Year
  Sex: Male

DRUGS (2)
  1. NATRECOR [Suspect]
     Indication: CARDIAC FAILURE CONGESTIVE
     Dosage: 1/2 OF A BOLUS, DOSE UNKNOWN
     Dates: start: 20040206, end: 20040206
  2. DOBUTAMINE (DOBUTAMINE) [Concomitant]

REACTIONS (9)
  - AORTIC STENOSIS [None]
  - BLOOD PRESSURE SYSTOLIC DECREASED [None]
  - CARDIOMEGALY [None]
  - CONVULSION [None]
  - ELECTROMECHANICAL DISSOCIATION [None]
  - PLEURAL EFFUSION [None]
  - VENTRICULAR FIBRILLATION [None]
  - VENTRICULAR HYPERTROPHY [None]
  - VOMITING [None]
